FAERS Safety Report 7901200-6 (Version None)
Quarter: 2011Q4

REPORT INFORMATION
  Report Type: 
  Country: None (occurrence: None)
  Receive Date: 20111108
  Receipt Date: 20111026
  Transmission Date: 20120403
  Serious: Yes (Hospitalization)
  Sender: FDA-Public Use
  Company Number: PHHY2011FR94922

PATIENT
  Sex: Female

DRUGS (4)
  1. ATHYMIL [Suspect]
     Indication: DEPRESSION
     Dosage: 30 MG, QD
     Dates: start: 20110117, end: 20110315
  2. XANAX [Suspect]
     Indication: ANXIETY
     Dosage: 0.25 MG, BID
     Route: 048
     Dates: start: 20100101
  3. MADOPAR [Suspect]
     Indication: PARKINSON'S DISEASE
     Dosage: 6 DF (DAILY)
     Dates: start: 20110215
  4. EXELON [Suspect]
     Indication: DEMENTIA WITH LEWY BODIES
     Route: 062
     Dates: start: 20110101

REACTIONS (3)
  - FEBRILE NEUTROPENIA [None]
  - LEUKOPENIA [None]
  - NEUTROPENIA [None]
